FAERS Safety Report 15684195 (Version 1)
Quarter: 2018Q4

REPORT INFORMATION
  Report Type: Spontaneous
  Country: CA (occurrence: CA)
  Receive Date: 20181204
  Receipt Date: 20181204
  Transmission Date: 20190205
  Serious: Yes (Other)
  Sender: FDA-Public Use
  Company Number: CA-ICU MEDICAL, INC.-ICU2018CA00148

PATIENT
  Age: 76 Year
  Sex: Female

DRUGS (4)
  1. FENTANYL. [Suspect]
     Active Substance: FENTANYL
     Indication: MAINTENANCE OF ANAESTHESIA
     Dosage: 10 MILLIGRAM
     Route: 065
  2. BUPIVACAINE W/FENTANYL [Concomitant]
     Active Substance: BUPIVACAINE\FENTANYL
     Indication: MAINTENANCE OF ANAESTHESIA
     Dosage: 15 MILLIGRAM
     Route: 065
  3. FENTANYL. [Suspect]
     Active Substance: FENTANYL
     Dosage: 150 MICROGRAM
     Route: 042
  4. MORPHINE SULFATE INJECTION [Suspect]
     Active Substance: MORPHINE SULFATE
     Indication: ANAESTHETIC PREMEDICATION
     Dosage: 10 MILLIGRAM
     Route: 065

REACTIONS (3)
  - Drug interaction [Recovered/Resolved]
  - Sinus bradycardia [Recovered/Resolved]
  - Sphincter of Oddi dysfunction [Recovered/Resolved]
